FAERS Safety Report 18663956 (Version 2)
Quarter: 2021Q1

REPORT INFORMATION
  Report Type: Report from Study
  Country: None (occurrence: US)
  Receive Date: 20201224
  Receipt Date: 20210215
  Transmission Date: 20210419
  Serious: Yes (Hospitalization, Other)
  Sender: FDA-Public Use
  Company Number: US-ABBVIE-20K-163-3702856-00

PATIENT
  Age: 76 Year
  Sex: Female
  Weight: 65.83 kg

DRUGS (15)
  1. ALBUTEROL. [Concomitant]
     Active Substance: ALBUTEROL
     Indication: CHRONIC OBSTRUCTIVE PULMONARY DISEASE
  2. IRBESARTAN. [Concomitant]
     Active Substance: IRBESARTAN
     Indication: BLOOD PRESSURE MEASUREMENT
  3. ATORVASTATIN [Concomitant]
     Active Substance: ATORVASTATIN
     Indication: ARTERIAL DISORDER
  4. HUMALOG [Concomitant]
     Active Substance: INSULIN LISPRO
     Indication: DIABETES MELLITUS
  5. YUPELRI [Concomitant]
     Active Substance: REVEFENACIN
     Indication: RESPIRATION ABNORMAL
  6. FUROSEMIDE. [Concomitant]
     Active Substance: FUROSEMIDE
     Indication: FLUID IMBALANCE
  7. ALBUTEROL. [Concomitant]
     Active Substance: ALBUTEROL
     Indication: RESPIRATION ABNORMAL
  8. YUPELRI [Concomitant]
     Active Substance: REVEFENACIN
     Indication: CHRONIC OBSTRUCTIVE PULMONARY DISEASE
  9. BROVANA [Concomitant]
     Active Substance: ARFORMOTEROL TARTRATE
     Indication: CHRONIC OBSTRUCTIVE PULMONARY DISEASE
  10. CREON [Suspect]
     Active Substance: PANCRELIPASE AMYLASE\PANCRELIPASE LIPASE\PANCRELIPASE PROTEASE
     Indication: PANCREATOLITHIASIS
     Dosage: TWO WITH EACH MEAL AND SNACK
     Route: 048
     Dates: start: 2017
  11. LANTUS [Concomitant]
     Active Substance: INSULIN GLARGINE
     Indication: DIABETES MELLITUS
  12. CREON [Suspect]
     Active Substance: PANCRELIPASE AMYLASE\PANCRELIPASE LIPASE\PANCRELIPASE PROTEASE
     Indication: GASTRIC DISORDER
  13. ATORVASTATIN [Concomitant]
     Active Substance: ATORVASTATIN
     Indication: BLOOD CHOLESTEROL
  14. SERTRALINE [Concomitant]
     Active Substance: SERTRALINE HYDROCHLORIDE
     Indication: NERVOUS SYSTEM DISORDER
  15. BROVANA [Concomitant]
     Active Substance: ARFORMOTEROL TARTRATE
     Indication: RESPIRATION ABNORMAL

REACTIONS (1)
  - Lung carcinoma cell type unspecified stage I [Not Recovered/Not Resolved]

NARRATIVE: CASE EVENT DATE: 202012
